FAERS Safety Report 6966236-0 (Version None)
Quarter: 2010Q3

REPORT INFORMATION
  Report Type: 
  Country: None (occurrence: None)
  Receive Date: 20100903
  Receipt Date: 20100823
  Transmission Date: 20110219
  Serious: Yes (Other)
  Sender: FDA-Public Use
  Company Number: US-TEVA-234494USA

PATIENT
  Age: 48 Year
  Sex: Female

DRUGS (3)
  1. ALENDRONATE SODIUM [Suspect]
     Indication: OSTEOPOROSIS
     Dosage: WEEKLY
     Route: 048
  2. PREDNISONE [Concomitant]
  3. ESTRADIOL [Concomitant]

REACTIONS (1)
  - TIBIA FRACTURE [None]
